FAERS Safety Report 25332076 (Version 1)
Quarter: 2025Q2

REPORT INFORMATION
  Report Type: Spontaneous
  Country: PL (occurrence: PL)
  Receive Date: 20250519
  Receipt Date: 20250519
  Transmission Date: 20250716
  Serious: Yes (Life-Threatening)
  Sender: B BRAUN
  Company Number: PL-B.Braun Medical Inc.-2177016

PATIENT
  Age: 29 Year
  Sex: Female
  Weight: 80 kg

DRUGS (1)
  1. ACETAMINOPHEN [Suspect]
     Active Substance: ACETAMINOPHEN

REACTIONS (3)
  - Agitation [Recovered/Resolved]
  - Drug interaction [Recovered/Resolved]
  - Illogical thinking [Recovered/Resolved]
